FAERS Safety Report 4866917-9 (Version None)
Quarter: 2005Q4

REPORT INFORMATION
  Report Type: 
  Country: None (occurrence: None)
  Receive Date: 20051222
  Receipt Date: 20051215
  Transmission Date: 20060501
  Serious: Yes (Hospitalization)
  Sender: FDA-Public Use
  Company Number: 2005164603

PATIENT
  Age: 79 Year
  Sex: Female

DRUGS (9)
  1. ATARAX [Suspect]
     Indication: ILL-DEFINED DISORDER
     Dosage: 25 MG (25 MG, 1 IN 1 D), ORAL
     Route: 048
     Dates: start: 20051105, end: 20051118
  2. FOIPAN (CAMOSTAT MESILATE) [Concomitant]
  3. TALION (BEPOTASTINE BESILATE) [Concomitant]
  4. BERIZYM (ENZYMES  NOS) [Concomitant]
  5. SELBEX (TEPRENONE) [Concomitant]
  6. MAGNESIUM OXIDE (MAGNESIUM OXIDE) [Concomitant]
  7. PURSENNID (SENNA LEAF) [Concomitant]
  8. LOXONIN (LOXOPROFEN SODIUM) [Concomitant]
  9. TIENAM (CILASTATIN, IMIPENEM) [Concomitant]

REACTIONS (3)
  - INFECTION [None]
  - MUCOUS MEMBRANE DISORDER [None]
  - NASOPHARYNGEAL DISORDER [None]
